FAERS Safety Report 6889100-4 (Version None)
Quarter: 2010Q3

REPORT INFORMATION
  Report Type: 
  Country: None (occurrence: None)
  Receive Date: 20100730
  Receipt Date: 20071226
  Transmission Date: 20110219
  Serious: No
  Sender: FDA-Public Use
  Company Number: US-PFIZER INC-2007095661

PATIENT
  Sex: Male
  Weight: 88 kg

DRUGS (3)
  1. LIPITOR [Suspect]
     Indication: HYPERLIPIDAEMIA
     Dates: start: 20061001, end: 20071001
  2. ACETYLSALICYLIC ACID SRT [Concomitant]
  3. FISH OIL [Concomitant]

REACTIONS (1)
  - DRUG INEFFECTIVE [None]
